FAERS Safety Report 8397775 (Version 3)
Quarter: 2013Q1

REPORT INFORMATION
  Report Type: Spontaneous
  Country: US (occurrence: None)
  Receive Date: 20120131
  Receipt Date: 20130102
  Transmission Date: 20140127
  Serious: Yes (Other)
  Sender: FDA-Public Use
  Company Number: 2009001531

PATIENT
  Age: 69 Year
  Sex: Female
  Weight: 72 kg

DRUGS (4)
  1. TARCEVA [Suspect]
     Indication: LUNG NEOPLASM MALIGNANT
     Dosage: 3 X 25 MG, UID/QD, ORAL
     Route: 048
     Dates: start: 20090316, end: 20111205
  2. UNSPECIFIED INGREDIENT [Suspect]
     Indication: PRODUCT USED FOR UNKNOWN INDICATION
     Dosage: UNK, OPHTHALMIC
     Route: 047
  3. CELEXA [Suspect]
  4. CARDIZEM  /00489702/ (DILTIAZEM HYDROCHLORIDE) [Concomitant]

REACTIONS (8)
  - Incorrect dose administered [None]
  - Corneal abrasion [None]
  - Diarrhoea [None]
  - Onychoclasis [None]
  - Onychomadesis [None]
  - Ulcerative keratitis [None]
  - Nausea [None]
  - Ulcerative keratitis [None]
